FAERS Safety Report 7115438-1 (Version None)
Quarter: 2010Q4

REPORT INFORMATION
  Report Type: 
  Country: None (occurrence: None)
  Receive Date: 20101122
  Receipt Date: 20101116
  Transmission Date: 20110411
  Serious: Yes (Life-Threatening, Hospitalization)
  Sender: FDA-Public Use
  Company Number: FR-ASTRAZENECA-2010SE54582

PATIENT
  Age: 10 Month
  Sex: Male

DRUGS (9)
  1. NEXIUM [Suspect]
     Route: 042
     Dates: start: 20101018, end: 20101025
  2. CEFOTAXIME MYLAN [Suspect]
     Route: 042
     Dates: start: 20101017, end: 20101025
  3. FUROSEMIDE RENAUDIN [Suspect]
     Route: 042
     Dates: start: 20101019, end: 20101020
  4. BUMEX [Suspect]
     Route: 042
     Dates: start: 20101019, end: 20101025
  5. KETALAR [Concomitant]
     Indication: SEDATION
  6. DOBUTREX [Concomitant]
  7. NORADRENALINE [Concomitant]
  8. PERFALGAN [Concomitant]
  9. SUFENTA PRESERVATIVE FREE [Concomitant]
     Indication: SEDATION

REACTIONS (1)
  - EPIDERMOLYSIS BULLOSA [None]
